FAERS Safety Report 17741818 (Version 1)
Quarter: 2020Q2

REPORT INFORMATION
  Report Type: Spontaneous
  Country: CN (occurrence: CN)
  Receive Date: 20200504
  Receipt Date: 20200504
  Transmission Date: 20200714
  Serious: Yes (Hospitalization, Disabling, Other)
  Sender: FDA-Public Use
  Company Number: CN-SA-2020SA108970

PATIENT
  Age: 26 Year
  Sex: Female

DRUGS (6)
  1. RABEPRAZOLE SODIUM. [Concomitant]
     Active Substance: RABEPRAZOLE SODIUM
     Dosage: 1 DF, QD, 10MG / TABLET, 1 TABLET DAILY, IN THE MORNING
     Route: 048
  2. PREDNISONE. [Concomitant]
     Active Substance: PREDNISONE
     Dosage: 8 DF, QD (5G / TABLET, 8 TABLETS A TIME, ONCE A DAY, IN THE MORNING. DOSAGE REDUCES 1 TABLET / DAY E
     Route: 048
     Dates: start: 20200407
  3. AUBAGIO [Suspect]
     Active Substance: TERIFLUNOMIDE
     Indication: MULTIPLE SCLEROSIS
     Dosage: 14 MG, QD
     Route: 048
     Dates: start: 20190930
  4. METHYLCOBALAMIN. [Concomitant]
     Active Substance: METHYLCOBALAMIN
     Dosage: 1 DF, TID,0.5 MG/TABLET,1 TABLET A TIME 3 TIMES DAILY
     Route: 048
     Dates: start: 20200407
  5. POTASSIUM CHLORIDE. [Concomitant]
     Active Substance: POTASSIUM CHLORIDE
     Dosage: 1 DF, BID,0.5G / TABLET, 1 TABLET A TIME, 2 TIMES A DAY
     Route: 048
     Dates: start: 20200407
  6. AUBAGIO [Suspect]
     Active Substance: TERIFLUNOMIDE
     Dosage: 0.25 DF, QD (14MG / TABLET, 1/4 TABLET DAILY, IN THE MORNING)
     Route: 048
     Dates: start: 20200407

REACTIONS (7)
  - Tongue paralysis [Recovered/Resolved]
  - Paraesthesia [Recovered/Resolved]
  - Blindness [Recovered/Resolved]
  - Muscle twitching [Recovered/Resolved]
  - Gait disturbance [Recovered/Resolved]
  - Drug-induced liver injury [Recovered/Resolved]
  - Product prescribing error [Unknown]

NARRATIVE: CASE EVENT DATE: 20200323
